FAERS Safety Report 17157559 (Version 1)
Quarter: 2019Q4

REPORT INFORMATION
  Report Type: Spontaneous
  Country: US (occurrence: US)
  Receive Date: 20191216
  Receipt Date: 20191216
  Transmission Date: 20200122
  Serious: Yes (Other)
  Sender: FDA-Public Use
  Company Number: US-INFO-000903

PATIENT
  Age: 64 Year
  Sex: Female

DRUGS (1)
  1. ZOLEDRONIC ACID 5 MG [Suspect]
     Active Substance: ZOLEDRONIC ACID
     Indication: SENILE OSTEOPOROSIS
     Route: 042
     Dates: start: 20191119, end: 20191119

REACTIONS (2)
  - Off label use [Recovering/Resolving]
  - Cellulitis [Recovering/Resolving]
